FAERS Safety Report 5447529-5 (Version None)
Quarter: 2007Q3

REPORT INFORMATION
  Report Type: 
  Country: None (occurrence: None)
  Receive Date: 20070910
  Receipt Date: 20070831
  Transmission Date: 20080115
  Serious: Yes (Disabling)
  Sender: FDA-Public Use
  Company Number: B0486185A

PATIENT
  Age: 76 Year
  Sex: Female
  Weight: 70 kg

DRUGS (5)
  1. ROSIGLITAZONE [Suspect]
     Route: 048
     Dates: start: 20070601, end: 20070801
  2. CLOPIDOGREL [Concomitant]
  3. CODEINE PHOSPHATE AND ACETAMINOPHEN [Concomitant]
  4. RAMIPRIL [Concomitant]
     Route: 048
  5. SIMVASTATIN [Concomitant]

REACTIONS (4)
  - BLINDNESS [None]
  - DEPRESSION [None]
  - FEELING ABNORMAL [None]
  - VISION BLURRED [None]
